FAERS Safety Report 22356910 (Version 1)
Quarter: 2023Q2

REPORT INFORMATION
  Report Type: Spontaneous
  Country: MD (occurrence: MD)
  Receive Date: 20230523
  Receipt Date: 20230523
  Transmission Date: 20230722
  Serious: Yes (Hospitalization, Other)
  Sender: FDA-Public Use
  Company Number: MD-BAYER-2023A070906

PATIENT
  Age: 57 Year
  Sex: Female

DRUGS (1)
  1. XARELTO [Suspect]
     Active Substance: RIVAROXABAN
     Indication: Product used for unknown indication
     Dosage: 10 MG, QD
     Route: 048

REACTIONS (4)
  - Toxic epidermal necrolysis [Unknown]
  - Knee arthroplasty [Unknown]
  - Cyanosis [Unknown]
  - Rash [Unknown]

NARRATIVE: CASE EVENT DATE: 20230401
